FAERS Safety Report 23477618 (Version 1)
Quarter: 2024Q1

REPORT INFORMATION
  Report Type: Spontaneous
  Country: US (occurrence: US)
  Receive Date: 20240204
  Receipt Date: 20240204
  Transmission Date: 20240410
  Serious: Yes (Other)
  Sender: FDA-Public Use
  Company Number: US-MLMSERVICE-20240118-4782671-1

PATIENT
  Age: 87 Year
  Sex: Female

DRUGS (8)
  1. NEOMYCIN AND POLYMYXIN B SULFATES AND DEXAMETHASONE [Suspect]
     Active Substance: DEXAMETHASONE\NEOMYCIN SULFATE\POLYMYXIN B SULFATE
     Indication: Product used for unknown indication
     Route: 061
     Dates: end: 2022
  2. LOTEPREDNOL [Suspect]
     Active Substance: LOTEPREDNOL
     Indication: Product used for unknown indication
     Route: 061
     Dates: end: 2022
  3. TRIMETHOPRIM, POLYMYXIN [Concomitant]
     Indication: Product used for unknown indication
     Route: 061
  4. TRAVOPROST [Concomitant]
     Active Substance: TRAVOPROST
     Indication: Product used for unknown indication
     Route: 061
  5. BESIFLOXACIN [Concomitant]
     Active Substance: BESIFLOXACIN
     Indication: Antibiotic therapy
     Route: 061
  6. MOXIFLOXACIN [Concomitant]
     Active Substance: MOXIFLOXACIN
     Indication: Product used for unknown indication
     Route: 061
  7. TIMOLOL, BRIMONIDINE [Concomitant]
     Indication: Product used for unknown indication
     Route: 061
  8. ERYTHROMYCIN [Concomitant]
     Active Substance: ERYTHROMYCIN
     Indication: Antibiotic therapy
     Route: 061

REACTIONS (1)
  - Keratitis fungal [Recovered/Resolved]

NARRATIVE: CASE EVENT DATE: 20220301
